FAERS Safety Report 6195223-8 (Version None)
Quarter: 2009Q2

REPORT INFORMATION
  Report Type: 
  Country: None (occurrence: None)
  Receive Date: 20090519
  Receipt Date: 20090511
  Transmission Date: 20091009
  Serious: Yes (Disabling, Other)
  Sender: FDA-Public Use
  Company Number: JP-MERCK-0903USA05605

PATIENT
  Age: 45 Year
  Sex: Male
  Weight: 74 kg

DRUGS (3)
  1. HYZAAR [Suspect]
     Indication: HYPERTENSION
     Route: 048
     Dates: start: 20090126, end: 20090311
  2. ADALAT CC [Concomitant]
     Indication: HYPERTENSION
     Route: 048
     Dates: start: 20090126, end: 20090311
  3. LIVALO [Concomitant]
     Indication: HYPERLIPIDAEMIA
     Route: 048
     Dates: start: 20090126, end: 20090408

REACTIONS (4)
  - HYPERTHYROIDISM [None]
  - HYPERURICAEMIA [None]
  - HYPOKALAEMIA [None]
  - PARALYSIS [None]
